FAERS Safety Report 5904572-7 (Version None)
Quarter: 2008Q4

REPORT INFORMATION
  Report Type: 
  Country: None (occurrence: None)
  Receive Date: 20081001
  Receipt Date: 20080929
  Transmission Date: 20090506
  Serious: Yes (Hospitalization)
  Sender: FDA-Public Use
  Company Number: US-ELI_LILLY_AND_COMPANY-US200809006691

PATIENT
  Sex: Female

DRUGS (1)
  1. HUMALOG [Suspect]
     Dates: start: 20070101

REACTIONS (1)
  - HOSPITALISATION [None]
